FAERS Safety Report 17224534 (Version 3)
Quarter: 2020Q1

REPORT INFORMATION
  Report Type: Spontaneous
  Country: IN (occurrence: IN)
  Receive Date: 20200102
  Receipt Date: 20200227
  Transmission Date: 20200409
  Serious: Yes (Hospitalization)
  Sender: FDA-Public Use
  Company Number: IN-PFIZER INC-2019437021

PATIENT
  Age: 50 Year
  Sex: Female
  Weight: 66.8 kg

DRUGS (3)
  1. LETROZOL [Concomitant]
     Active Substance: LETROZOLE
     Dosage: UNK
  2. ZOLEDRONATE [Concomitant]
     Active Substance: ZOLEDRONIC ACID
  3. PALBACE [Suspect]
     Active Substance: PALBOCICLIB
     Indication: BREAST CANCER METASTATIC
     Dosage: 125 MG, 1X/DAY
     Route: 048
     Dates: start: 20181220

REACTIONS (8)
  - Cough [Unknown]
  - Vomiting [Unknown]
  - Throat irritation [Unknown]
  - Chest pain [Unknown]
  - Full blood count decreased [Unknown]
  - Dyspnoea [Unknown]
  - Pyrexia [Unknown]
  - Nausea [Unknown]

NARRATIVE: CASE EVENT DATE: 20190110
